FAERS Safety Report 6578125-4 (Version None)
Quarter: 2010Q1

REPORT INFORMATION
  Report Type: 
  Country: None (occurrence: None)
  Receive Date: 20100211
  Receipt Date: 20100205
  Transmission Date: 20100710
  Serious: Yes (Hospitalization)
  Sender: FDA-Public Use
  Company Number: AR-PFIZER INC-2010003826

PATIENT
  Sex: Female

DRUGS (2)
  1. CHAMPIX [Suspect]
     Indication: TOBACCO USER
     Dosage: 0.5 MG, 2X/DAY, EVERY DAY
     Route: 048
     Dates: start: 20100107, end: 20100108
  2. ALPLAX [Concomitant]
     Dosage: UNK
     Route: 048

REACTIONS (9)
  - CHOLINERGIC SYNDROME [None]
  - HEADACHE [None]
  - HYPERTENSION [None]
  - IMPAIRED WORK ABILITY [None]
  - MYALGIA [None]
  - NAUSEA [None]
  - SALIVARY HYPERSECRETION [None]
  - TREMOR [None]
  - VOMITING [None]
